FAERS Safety Report 8018168-7 (Version None)
Quarter: 2012Q1

REPORT INFORMATION
  Report Type: 
  Country: None (occurrence: None)
  Receive Date: 20120103
  Receipt Date: 20111226
  Transmission Date: 20120608
  Serious: Yes (Death)
  Sender: FDA-Public Use
  Company Number: AT-TEVA-313163ISR

PATIENT
  Age: 73 Year
  Sex: Male

DRUGS (4)
  1. ENALAPRIL MALEATE [Suspect]
     Dosage: 10 MILLIGRAM;
  2. AMILORIDE HCL AND HYDROCHLOROTHIAZIDE [Suspect]
     Dosage: 50/5MG
  3. FUROSEMIDE [Suspect]
     Dosage: 30 MILLIGRAM;
  4. SPIRONOLACTONE [Suspect]
     Dosage: 100 MILLIGRAM;

REACTIONS (3)
  - CARDIAC ARREST [None]
  - HYPERKALAEMIA [None]
  - RENAL FAILURE CHRONIC [None]
